FAERS Safety Report 10454343 (Version 1)
Quarter: 2014Q3

REPORT INFORMATION
  Report Type: Report from Study
  Country: US (occurrence: US)
  Receive Date: 20140915
  Receipt Date: 20140915
  Transmission Date: 20150326
  Serious: Yes (Hospitalization)
  Sender: FDA-Public Use
  Company Number: US-TEVA-508455USA

PATIENT
  Age: 76 Year
  Sex: Male
  Weight: 63.15 kg

DRUGS (5)
  1. LEUCOVORIN [Concomitant]
     Active Substance: LEUCOVORIN
     Dates: start: 20140128
  2. FLUOROURACIL. [Suspect]
     Active Substance: FLUOROURACIL
     Dosage: OVER 46-48 HOURS, ON DAY 1
     Route: 042
     Dates: start: 20140128, end: 20140314
  3. OXALIPLATIN INJECTION 50MG/10 ML AND 100 MG/20ML [Suspect]
     Active Substance: OXALIPLATIN
     Indication: ADENOCARCINOMA OF COLON
     Dosage: OVER 2 HOURS ON DAY 1
     Route: 042
     Dates: start: 20140128, end: 20140312
  4. FLUOROURACIL. [Suspect]
     Active Substance: FLUOROURACIL
     Indication: ADENOCARCINOMA OF COLON
     Dosage: ON DAY 1
     Route: 042
     Dates: start: 20140128, end: 20140314
  5. CELECOXIB;PLACEBO [Suspect]
     Active Substance: CELECOXIB\PLACEBO
     Indication: ADENOCARCINOMA OF COLON
     Dosage: 400 MILLIGRAM DAILY;
     Route: 048
     Dates: end: 20140323

REACTIONS (5)
  - Dehydration [Not Recovered/Not Resolved]
  - Blood creatinine increased [Not Recovered/Not Resolved]
  - Diarrhoea [Not Recovered/Not Resolved]
  - Hypokalaemia [Not Recovered/Not Resolved]
  - Neutrophil count decreased [Recovered/Resolved]

NARRATIVE: CASE EVENT DATE: 20140321
